FAERS Safety Report 6497378-4 (Version None)
Quarter: 2009Q4

REPORT INFORMATION
  Report Type: 
  Country: None (occurrence: None)
  Receive Date: 20091215
  Receipt Date: 20091026
  Transmission Date: 20100525
  Serious: No
  Sender: FDA-Public Use
  Company Number: A0813389A

PATIENT
  Age: 73 Year
  Sex: Male

DRUGS (5)
  1. AVODART [Suspect]
     Indication: BENIGN PROSTATIC HYPERPLASIA
     Dosage: 1TAB PER DAY
     Route: 048
     Dates: start: 20080801, end: 20090513
  2. LIPITOR [Concomitant]
  3. BABY ASPIRIN [Concomitant]
  4. AMLODIPINE [Concomitant]
  5. LORAZEPAM [Concomitant]

REACTIONS (2)
  - BREAST SWELLING [None]
  - BREAST TENDERNESS [None]
